FAERS Safety Report 4298992-7 (Version None)
Quarter: 2004Q1

REPORT INFORMATION
  Report Type: 
  Country: None (occurrence: None)
  Receive Date: 20040217
  Receipt Date: 20040210
  Transmission Date: 20041129
  Serious: Yes (Life-Threatening, Hospitalization, Other)
  Sender: FDA-Public Use
  Company Number: FRWYE571210FEB04

PATIENT
  Age: 82 Year
  Sex: Male

DRUGS (17)
  1. OXAZEPAM [Suspect]
     Indication: AGITATION
     Dosage: 25 MG 1 X PER 1 DAY, ORAL
     Route: 048
     Dates: start: 20040116, end: 20040117
  2. OXAZEPAM [Suspect]
     Indication: SLEEP DISORDER
     Dosage: 25 MG 1 X PER 1 DAY, ORAL
     Route: 048
     Dates: start: 20040116, end: 20040117
  3. OXAZEPAM [Suspect]
     Indication: AGITATION
     Dosage: 25 MG 1 X PER 1 DAY, ORAL
     Route: 048
     Dates: start: 20040101
  4. OXAZEPAM [Suspect]
     Indication: SLEEP DISORDER
     Dosage: 25 MG 1 X PER 1 DAY, ORAL
     Route: 048
     Dates: start: 20040101
  5. IMOVANE (ZOPICLONE, 0) [Suspect]
     Indication: AGITATION
     Dosage: 7.5 MG 1 X PER 1 DAY, ORAL
     Route: 048
     Dates: start: 20040116
  6. IMOVANE (ZOPICLONE, 0) [Suspect]
     Indication: SLEEP DISORDER
     Dosage: 7.5 MG 1 X PER 1 DAY, ORAL
     Route: 048
     Dates: start: 20040116
  7. THERALENE (ALIMEMAZINE TARTRATE) [Concomitant]
  8. ATHYMIL (MIANSERIN HYDROCHLORIDE) [Concomitant]
  9. LEXOMIL (BROMAZEPAM) [Concomitant]
  10. ASPEGIC 1000 [Concomitant]
  11. FORLAX (MARCOGOL) [Concomitant]
  12. CORENITEC (ENALAPRIL MALEATE/HYDROCHLOROTHIAZIDE) [Concomitant]
  13. CORVASAL (MOLSIDOMINE) [Concomitant]
  14. NITRODERM [Concomitant]
  15. SOTALOL HCL [Concomitant]
  16. PROSCAR [Concomitant]
  17. ZOLOFT [Concomitant]

REACTIONS (2)
  - AGITATION [None]
  - COMA [None]
